FAERS Safety Report 21932232 (Version 8)
Quarter: 2025Q4

REPORT INFORMATION
  Report Type: Spontaneous
  Country: US (occurrence: US)
  Receive Date: 20230131
  Receipt Date: 20251016
  Transmission Date: 20260118
  Serious: Yes (Other)
  Sender: PFIZER
  Company Number: US-PFIZER INC-PV202300016535

PATIENT
  Age: 74 Year
  Sex: Female

DRUGS (1)
  1. IBRANCE [Suspect]
     Active Substance: PALBOCICLIB
     Indication: Breast cancer metastatic
     Dosage: 21 DAYS ON, 7 DAYS OFF (TREATMENT OF 28 DAY CYCLE)/QDAY 21 DAYS ON 7 DAYS OFF
     Route: 048

REACTIONS (4)
  - Full blood count decreased [Unknown]
  - Neutrophil count decreased [Recovered/Resolved]
  - Alopecia [Unknown]
  - Blood disorder [Unknown]
